FAERS Safety Report 9387323 (Version 2)
Quarter: 2013Q3

REPORT INFORMATION
  Report Type: Spontaneous
  Country: US (occurrence: None)
  Receive Date: 20130702
  Receipt Date: 20130708
  Transmission Date: 20140515
  Serious: Yes (Hospitalization)
  Sender: FDA-Public Use
  Company Number: AUR-APL-2013-05490

PATIENT
  Age: 77 Year
  Sex: Male

DRUGS (3)
  1. LEVETIRACETAM [Suspect]
     Indication: POST-TRAUMATIC EPILEPSY
     Dosage: 1000 MG (500 MG, 2 IN 1 D), INTRAVENOUS
  2. LEVETIRACETAM [Suspect]
     Indication: PRODUCT USED FOR UNKNOWN INDICATION
     Dosage: 1000 MG (500 MG, 2 IN 1)
     Route: 042
  3. LEVETIRACETAM [Suspect]
     Indication: CONVULSION PROPHYLAXIS
     Dosage: 1000 MG (500 MG, 2 IN 1)
     Route: 042

REACTIONS (9)
  - Agitation [None]
  - Lethargy [None]
  - Subdural haematoma [None]
  - Consciousness fluctuating [None]
  - Disorientation [None]
  - Speech disorder [None]
  - Aggression [None]
  - Patient restraint [None]
  - Delirium [None]
